FAERS Safety Report 8230547-1 (Version None)
Quarter: 2012Q1

REPORT INFORMATION
  Report Type: 
  Country: None (occurrence: None)
  Receive Date: 20120323
  Receipt Date: 20110726
  Transmission Date: 20120608
  Serious: Yes (Disabling)
  Sender: FDA-Public Use
  Company Number: US-MYLANLABS-2009S1020653

PATIENT
  Age: 30 Year
  Sex: Male
  Weight: 81.65 kg

DRUGS (21)
  1. TRAZODONE HCL [Suspect]
     Route: 048
     Dates: start: 20040226
  2. TRAZODONE HCL [Suspect]
     Route: 048
     Dates: start: 20040226
  3. LEXAPRO [Concomitant]
     Dates: start: 20040709
  4. TRAZODONE HCL [Suspect]
     Route: 048
     Dates: start: 20040318
  5. NAPROXEN [Concomitant]
     Dates: start: 20041120
  6. TEMAZEPAM [Suspect]
     Dosage: PRN
     Route: 048
     Dates: start: 20090303
  7. TRAZODONE HCL [Suspect]
     Route: 048
     Dates: start: 20040226
  8. TRAZODONE HCL [Suspect]
     Route: 048
     Dates: start: 20040226
  9. TRAZODONE HCL [Suspect]
     Indication: ANXIETY
     Route: 048
     Dates: start: 20040226, end: 20040401
  10. HYDROCODONE BITARTRATE AND ACETAMINOPHEN [Concomitant]
     Dates: start: 20041121
  11. TEMAZEPAM [Suspect]
     Indication: INSOMNIA
     Route: 048
     Dates: start: 20040324
  12. TEMAZEPAM [Suspect]
     Indication: ANXIETY
     Route: 048
     Dates: start: 20040324
  13. TEMAZEPAM [Suspect]
     Route: 048
     Dates: start: 20040817
  14. TEMAZEPAM [Suspect]
     Dosage: PRN
     Route: 048
     Dates: start: 20090303
  15. TEMAZEPAM [Suspect]
     Indication: INSOMNIA
     Route: 048
     Dates: start: 20040303, end: 20040817
  16. TRAZODONE HCL [Suspect]
     Indication: INSOMNIA
     Route: 048
     Dates: start: 20040226, end: 20040401
  17. TEMAZEPAM [Suspect]
     Route: 048
     Dates: start: 20040709
  18. TEMAZEPAM [Suspect]
     Route: 048
     Dates: start: 20040709
  19. TEMAZEPAM [Suspect]
     Route: 048
     Dates: start: 20040817
  20. TRAZODONE HCL [Suspect]
     Route: 048
     Dates: start: 20040318
  21. AMBIEN [Concomitant]
     Dates: start: 20040212, end: 20040301

REACTIONS (10)
  - ERECTILE DYSFUNCTION [None]
  - PALPITATIONS [None]
  - TACHYCARDIA [None]
  - MEMORY IMPAIRMENT [None]
  - ANXIETY [None]
  - ABNORMAL BEHAVIOUR [None]
  - SEXUAL ABUSE [None]
  - IMPRISONMENT [None]
  - AMNESIA [None]
  - DRUG INEFFECTIVE [None]
